FAERS Safety Report 9605242 (Version 1)
Quarter: 2013Q4

REPORT INFORMATION
  Report Type: Report from Study
  Country: RU (occurrence: RU)
  Receive Date: 20131008
  Receipt Date: 20131008
  Transmission Date: 20140711
  Serious: Yes (Hospitalization)
  Sender: FDA-Public Use
  Company Number: RU-VIIV HEALTHCARE LIMITED-A1044446A

PATIENT
  Sex: Male
  Weight: 3.6 kg

DRUGS (6)
  1. ZIAGEN [Suspect]
     Indication: ANTIVIRAL TREATMENT
     Dosage: 1U PER DAY
     Route: 064
     Dates: start: 20120519
  2. EPZICOM [Suspect]
     Indication: ANTIVIRAL TREATMENT
     Dosage: 1TAB PER DAY
     Route: 064
     Dates: start: 20120518
  3. EPIVIR [Suspect]
     Indication: HIV INFECTION
     Dosage: 1U PER DAY
     Route: 064
     Dates: start: 20120519
  4. EDURANT [Suspect]
     Indication: ANTIVIRAL TREATMENT
     Dosage: 25MG PER DAY
     Route: 064
     Dates: start: 20081218, end: 20121025
  5. TRUVADA [Suspect]
     Indication: ANTIRETROVIRAL THERAPY
     Dosage: 1U PER DAY
     Route: 064
     Dates: start: 20081218, end: 20121025
  6. KALETRA [Suspect]
     Indication: ANTIVIRAL TREATMENT
     Dosage: 2U PER DAY
     Route: 064
     Dates: start: 20121026

REACTIONS (2)
  - Neonatal asphyxia [Unknown]
  - Foetal exposure during pregnancy [Unknown]
